FAERS Safety Report 25729001 (Version 1)
Quarter: 2025Q3

REPORT INFORMATION
  Report Type: Report from Study
  Country: US (occurrence: US)
  Receive Date: 20250827
  Receipt Date: 20250827
  Transmission Date: 20251020
  Serious: No
  Sender: BIOGEN
  Company Number: US-BIOGEN-2025BI01321986

PATIENT
  Sex: Female

DRUGS (1)
  1. ZURZUVAE [Suspect]
     Active Substance: ZURANOLONE
     Indication: Product used for unknown indication
     Route: 050

REACTIONS (5)
  - Self-injurious ideation [Unknown]
  - Dysarthria [Unknown]
  - Drug ineffective [Unknown]
  - Sedation [Unknown]
  - Feeling drunk [Unknown]
